FAERS Safety Report 12890626 (Version 1)
Quarter: 2016Q4

REPORT INFORMATION
  Report Type: Spontaneous
  Country: US (occurrence: US)
  Receive Date: 20161027
  Receipt Date: 20161027
  Transmission Date: 20170207
  Serious: No
  Sender: FDA-Public Use
  Company Number: US-JAZZ-2016-US-015868

PATIENT
  Sex: Female

DRUGS (27)
  1. ADVAIR HFA [Concomitant]
     Active Substance: FLUTICASONE PROPIONATE\SALMETEROL XINAFOATE
  2. ADDERALL [Concomitant]
     Active Substance: AMPHETAMINE ASPARTATE\AMPHETAMINE SULFATE\DEXTROAMPHETAMINE SACCHARATE\DEXTROAMPHETAMINE SULFATE
  3. FLUNISOLIDE. [Concomitant]
     Active Substance: FLUNISOLIDE
  4. PROGESTERONE. [Concomitant]
     Active Substance: PROGESTERONE
  5. TRIAMCINOLONE [Concomitant]
     Active Substance: TRIAMCINOLONE
  6. LEVOTHYROXINE. [Concomitant]
     Active Substance: LEVOTHYROXINE
  7. XYREM [Suspect]
     Active Substance: SODIUM OXYBATE
     Indication: NARCOLEPSY
     Dosage: 4.5 G, BID
     Route: 048
     Dates: start: 201410
  8. SINGULAIR [Concomitant]
     Active Substance: MONTELUKAST SODIUM
  9. SYMBICORT [Concomitant]
     Active Substance: BUDESONIDE\FORMOTEROL FUMARATE DIHYDRATE
  10. EPIPEN [Concomitant]
     Active Substance: EPINEPHRINE
  11. STRATTERA [Concomitant]
     Active Substance: ATOMOXETINE HYDROCHLORIDE
  12. LEVOCETIRIZINE [Concomitant]
     Active Substance: LEVOCETIRIZINE
  13. ADDERALL [Concomitant]
     Active Substance: AMPHETAMINE ASPARTATE\AMPHETAMINE SULFATE\DEXTROAMPHETAMINE SACCHARATE\DEXTROAMPHETAMINE SULFATE
  14. OLANZAPINE. [Concomitant]
     Active Substance: OLANZAPINE
  15. HYDROCHLOROTHIAZIDE. [Concomitant]
     Active Substance: HYDROCHLOROTHIAZIDE
  16. L-CARNITINE [Concomitant]
     Active Substance: LEVOCARNITINE
  17. NASONEX [Concomitant]
     Active Substance: MOMETASONE FUROATE
  18. XYZAL [Concomitant]
     Active Substance: LEVOCETIRIZINE DIHYDROCHLORIDE
  19. BACLOFEN. [Concomitant]
     Active Substance: BACLOFEN
  20. NUVIGIL [Concomitant]
     Active Substance: ARMODAFINIL
  21. METHYLPHENIDATE. [Concomitant]
     Active Substance: METHYLPHENIDATE
  22. VITAMIN B12 [Concomitant]
     Active Substance: CYANOCOBALAMIN
  23. PROAIR HFA [Concomitant]
     Active Substance: ALBUTEROL SULFATE
  24. FLONASE [Concomitant]
     Active Substance: FLUTICASONE PROPIONATE
  25. LEVOXYL [Concomitant]
     Active Substance: LEVOTHYROXINE SODIUM
  26. ALFALFA [Concomitant]
     Active Substance: ALFALFA
  27. GARLIC. [Concomitant]
     Active Substance: GARLIC

REACTIONS (1)
  - Anxiety [Unknown]
